FAERS Safety Report 24901164 (Version 4)
Quarter: 2025Q1

REPORT INFORMATION
  Report Type: Report from Study
  Country: KR (occurrence: KR)
  Receive Date: 20250129
  Receipt Date: 20250325
  Transmission Date: 20250409
  Serious: Yes (Other)
  Sender: NOVARTIS
  Company Number: KR-002147023-NVSC2025KR013168

PATIENT
  Age: 63 Year
  Sex: Male

DRUGS (29)
  1. BEOVU [Suspect]
     Active Substance: BROLUCIZUMAB-DBLL
     Indication: Neovascular age-related macular degeneration
     Route: 031
     Dates: start: 20240125, end: 20240125
  2. BEOVU [Suspect]
     Active Substance: BROLUCIZUMAB-DBLL
     Route: 031
     Dates: start: 20240516, end: 20240516
  3. METHYLPREDNISOLONE ACEPONATE [Concomitant]
     Active Substance: METHYLPREDNISOLONE ACEPONATE
     Indication: Dermatitis
     Route: 065
     Dates: start: 20240125, end: 202404
  4. Anpran [Concomitant]
     Indication: Osteoarthritis
     Route: 065
     Dates: start: 20220913
  5. Bearoban [Concomitant]
     Indication: Dermatitis
     Route: 065
     Dates: start: 20240125, end: 202404
  6. MIRABEGRON [Concomitant]
     Active Substance: MIRABEGRON
     Indication: Bladder dysfunction
     Route: 065
     Dates: start: 20221114
  7. CALCIUM CARBONATE\CHOLECALCIFEROL [Concomitant]
     Active Substance: CALCIUM CARBONATE\CHOLECALCIFEROL
     Indication: Osteoarthritis
     Route: 065
     Dates: start: 20220913
  8. Dulackhan [Concomitant]
     Indication: Budd-Chiari syndrome
     Route: 065
     Dates: start: 202012
  9. Dulackhan [Concomitant]
     Route: 065
     Dates: start: 202310
  10. Entelon [Concomitant]
     Indication: Peripheral venous disease
     Route: 065
     Dates: start: 202310
  11. Esomezol [Concomitant]
     Indication: Osteoarthritis
     Route: 065
     Dates: start: 20220913
  12. AVOCADO\SOYBEAN OIL [Concomitant]
     Active Substance: AVOCADO\SOYBEAN OIL
     Indication: Osteoarthritis
     Route: 065
     Dates: start: 20220913
  13. Joins [Concomitant]
     Indication: Osteoarthritis
     Route: 065
     Dates: start: 20220913
  14. PIRENOXINE [Concomitant]
     Active Substance: PIRENOXINE
     Indication: Cataract
     Route: 047
     Dates: start: 20210520
  15. DIETARY SUPPLEMENT\HERBALS\MILK THISTLE [Concomitant]
     Active Substance: MILK THISTLE
     Indication: Budd-Chiari syndrome
     Route: 065
     Dates: start: 202204
  16. HERBALS [Concomitant]
     Active Substance: HERBALS
     Indication: Constipation
     Route: 065
     Dates: start: 20230601
  17. NOCDURNA [Concomitant]
     Active Substance: DESMOPRESSIN ACETATE
     Indication: Bladder dysfunction
     Route: 065
     Dates: start: 20230208
  18. PARACAINE [Concomitant]
     Active Substance: PROPARACAINE HYDROCHLORIDE
     Indication: Anaesthesia
     Route: 065
     Dates: start: 20240125, end: 20240125
  19. Resotron [Concomitant]
     Indication: Constipation
     Route: 065
     Dates: start: 20230601
  20. Silcon [Concomitant]
     Indication: Constipation
     Route: 065
     Dates: start: 20230601
  21. TROSPIUM CHLORIDE [Concomitant]
     Active Substance: TROSPIUM CHLORIDE
     Indication: Bladder dysfunction
     Route: 065
     Dates: start: 20221114
  22. SYNTHROID [Concomitant]
     Active Substance: LEVOTHYROXINE SODIUM
     Indication: Hypothyroidism
     Route: 065
     Dates: start: 20181127
  23. SYNTHROID [Concomitant]
     Active Substance: LEVOTHYROXINE SODIUM
     Route: 065
     Dates: start: 20220920
  24. Topisol [Concomitant]
     Indication: Dermatitis
     Route: 065
     Dates: start: 20240125
  25. Tropherin [Concomitant]
     Indication: Mydriasis
     Route: 065
     Dates: start: 20240125, end: 20240125
  26. URSODIOL [Concomitant]
     Active Substance: URSODIOL
     Indication: Budd-Chiari syndrome
     Route: 065
     Dates: start: 202107
  27. VIGAMOX [Concomitant]
     Active Substance: MOXIFLOXACIN HYDROCHLORIDE
     Indication: Drug therapy
     Route: 047
     Dates: start: 20240125, end: 20240131
  28. VIGAMOX [Concomitant]
     Active Substance: MOXIFLOXACIN HYDROCHLORIDE
     Route: 047
     Dates: start: 20240516, end: 20240522
  29. Xenobella [Concomitant]
     Indication: Dry eye
     Route: 065
     Dates: start: 20240118

REACTIONS (5)
  - Panniculitis [Recovered/Resolved]
  - Neurogenic bladder [Recovered/Resolved]
  - Haematuria [Recovered/Resolved]
  - Peripheral swelling [Recovered/Resolved]
  - Secretion discharge [Recovered/Resolved]

NARRATIVE: CASE EVENT DATE: 20240417
